FAERS Safety Report 6646796-X (Version None)
Quarter: 2010Q1

REPORT INFORMATION
  Report Type: 
  Country: None (occurrence: None)
  Receive Date: 20100323
  Receipt Date: 20100315
  Transmission Date: 20100710
  Serious: Yes (Hospitalization)
  Sender: FDA-Public Use
  Company Number: JP-MERCK-1001USA03472

PATIENT
  Age: 83 Year
  Sex: Female
  Weight: 43 kg

DRUGS (7)
  1. JANUVIA [Suspect]
     Indication: DIABETES MELLITUS
     Route: 048
     Dates: start: 20100114, end: 20100121
  2. EUGLUCON [Concomitant]
     Indication: DIABETES MELLITUS
     Route: 048
     Dates: start: 20080101, end: 20100113
  3. DIABETA [Concomitant]
     Indication: DIABETES MELLITUS
     Route: 048
     Dates: start: 20080101, end: 20100113
  4. ACTOS [Concomitant]
     Indication: DIABETES MELLITUS
     Route: 048
     Dates: start: 20080101, end: 20100113
  5. GLUCOBAY [Concomitant]
     Indication: DIABETES MELLITUS
     Route: 048
     Dates: start: 20080101, end: 20100113
  6. ADALAT CC [Concomitant]
     Indication: HYPERTENSION
     Route: 048
     Dates: start: 20080101
  7. SIMVASTATIN [Concomitant]
     Indication: DYSLIPIDAEMIA
     Route: 048
     Dates: start: 20080101

REACTIONS (2)
  - BACTERAEMIA [None]
  - DIABETIC KETOACIDOSIS [None]
